FAERS Safety Report 8416629 (Version 2)
Quarter: 2013Q1

REPORT INFORMATION
  Report Type: Spontaneous
  Country: US (occurrence: US)
  Receive Date: 20120220
  Receipt Date: 20130116
  Transmission Date: 20140127
  Serious: Yes (Other)
  Sender: FDA-Public Use
  Company Number: US-PFIZER INC-2012043766

PATIENT
  Age: 51 Year
  Sex: Female
  Weight: 69.39 kg

DRUGS (17)
  1. CHANTIX [Suspect]
     Indication: SMOKING CESSATION THERAPY
     Dosage: 0.5 MG, 1X/DAY
     Route: 048
     Dates: start: 20120209, end: 20120218
  2. CHANTIX [Suspect]
     Dosage: 0.5 MG, 1X/DAY
     Route: 048
     Dates: start: 2012, end: 2012
  3. CHANTIX [Suspect]
     Dosage: 0.5 MG, 2X/DAY
     Route: 048
     Dates: start: 2012, end: 2012
  4. CHANTIX [Suspect]
     Dosage: 1 MG, 2X/DAY
     Route: 048
     Dates: start: 2012
  5. NEURONTIN [Suspect]
     Indication: NEURALGIA
     Dosage: 100 MG, 3X/DAY
     Dates: start: 2012, end: 2012
  6. NEURONTIN [Suspect]
     Dosage: 200 MG, 3X/DAY
     Dates: start: 2012
  7. XANAX [Suspect]
     Dosage: 0.25 MG, 1X/DAY
  8. TRAZODONE HCL [Suspect]
     Indication: INSOMNIA
     Dosage: 50 MG, UNK
  9. CELEXA [Suspect]
     Dosage: 20 MG, DAILY
  10. FLECAINIDE [Concomitant]
     Indication: ATRIAL FIBRILLATION
     Dosage: 100 MG, 2X/DAY
  11. ACEBUTOLOL [Concomitant]
     Indication: CARDIAC DISORDER
     Dosage: 200 MG, 2X/DAY
  12. BABY ASPIRIN [Concomitant]
     Indication: CARDIAC DISORDER
     Dosage: 81 MG, DAILY
  13. SECTRAL [Concomitant]
     Indication: ATRIAL FIBRILLATION
     Dosage: 200 MG, 2X/DAY
  14. VITAMIN D [Concomitant]
     Dosage: 2000 IU, DAILY
  15. ZYRTEC [Concomitant]
     Indication: HYPERSENSITIVITY
     Dosage: UNK DAILY
  16. VICODIN [Concomitant]
     Dosage: ONE TABLET UP TO THREE TIMES A DAY AS NEEDED
  17. MORPHINE [Concomitant]
     Dosage: 50 MG, DAILY

REACTIONS (14)
  - Cardiac flutter [Not Recovered/Not Resolved]
  - Heart rate irregular [Not Recovered/Not Resolved]
  - Chest discomfort [Not Recovered/Not Resolved]
  - Migraine [Not Recovered/Not Resolved]
  - Headache [Not Recovered/Not Resolved]
  - Body temperature fluctuation [Not Recovered/Not Resolved]
  - Body temperature decreased [Not Recovered/Not Resolved]
  - Hypoaesthesia [Not Recovered/Not Resolved]
  - Nausea [Not Recovered/Not Resolved]
  - Influenza [Recovered/Resolved]
  - White blood cell count increased [Unknown]
  - Feeling abnormal [Recovered/Resolved]
  - Speech disorder [Recovered/Resolved]
  - Drug ineffective [Unknown]
